FAERS Safety Report 7080332-1 (Version None)
Quarter: 2010Q4

REPORT INFORMATION
  Report Type: 
  Country: None (occurrence: None)
  Receive Date: 20101103
  Receipt Date: 20101027
  Transmission Date: 20110411
  Serious: Yes (Other)
  Sender: FDA-Public Use
  Company Number: DE-SHIRE-SPV1-2010-01859

PATIENT
  Age: 44 Year
  Sex: Female
  Weight: 60 kg

DRUGS (2)
  1. EQUASYM RETARD [Suspect]
     Indication: SUICIDE ATTEMPT
     Dosage: 400 MG, ONE DOSE
     Dates: start: 20101022, end: 20101022
  2. ALCOHOL [Suspect]
     Dosage: 1.5 BOTTLES
     Route: 048
     Dates: start: 20101022, end: 20101022

REACTIONS (4)
  - INTENTIONAL OVERDOSE [None]
  - PARAESTHESIA [None]
  - RESTLESSNESS [None]
  - SUICIDE ATTEMPT [None]
